FAERS Safety Report 5742298-3 (Version None)
Quarter: 2008Q2

REPORT INFORMATION
  Report Type: 
  Country: None (occurrence: None)
  Receive Date: 20080519
  Receipt Date: 20080513
  Transmission Date: 20081010
  Serious: Yes (Other)
  Sender: FDA-Public Use
  Company Number: PHHY2008ES07745

PATIENT
  Age: 75 Year
  Sex: Female

DRUGS (2)
  1. TORECAN [Suspect]
     Indication: VERTIGO
     Dosage: 6.5 MG, BID
     Route: 048
     Dates: start: 20080223, end: 20080307
  2. ANEUROL [Concomitant]
     Dosage: UNK, QD
     Route: 048

REACTIONS (1)
  - TREMOR [None]
